FAERS Safety Report 4668789-4 (Version None)
Quarter: 2005Q2

REPORT INFORMATION
  Report Type: 
  Country: None (occurrence: None)
  Receive Date: 20050523
  Receipt Date: 20050131
  Transmission Date: 20051028
  Serious: Yes (Other)
  Sender: FDA-Public Use
  Company Number: PHNU2005DE00756

PATIENT
  Sex: Female

DRUGS (2)
  1. CHEMOTHERAPEUTICS,OTHER [Concomitant]
     Route: 065
  2. ZOMETA [Suspect]
     Indication: METASTASES TO BONE
     Dosage: 4 MG, QMO

REACTIONS (2)
  - OSTEONECROSIS [None]
  - STOMATITIS [None]
